FAERS Safety Report 12931941 (Version 1)
Quarter: 2016Q4

REPORT INFORMATION
  Report Type: Spontaneous
  Country: FI (occurrence: FI)
  Receive Date: 20161111
  Receipt Date: 20161111
  Transmission Date: 20170207
  Serious: Yes (Hospitalization, Other)
  Sender: FDA-Public Use
  Company Number: FI-ROCHE-1850803

PATIENT
  Age: 26 Year
  Sex: Female

DRUGS (14)
  1. PREDNISOLON [Concomitant]
     Active Substance: PREDNISOLONE
     Route: 065
     Dates: start: 201108
  2. ROACTEMRA [Suspect]
     Active Substance: TOCILIZUMAB
     Indication: TAKAYASU^S ARTERITIS
     Route: 042
     Dates: start: 20160821
  3. FOLIC ACID. [Concomitant]
     Active Substance: FOLIC ACID
     Route: 065
     Dates: start: 2016
  4. METOJECT [Concomitant]
     Active Substance: METHOTREXATE SODIUM
     Route: 058
     Dates: start: 2014
  5. PREDNISOLON [Concomitant]
     Active Substance: PREDNISOLONE
     Route: 065
  6. METOJECT [Concomitant]
     Active Substance: METHOTREXATE SODIUM
     Dosage: DECREASED UP TO 15 MG
     Route: 065
  7. CARDIOL (FINLAND) [Concomitant]
     Dosage: 12.5 MG + 6.25 MG
     Route: 065
  8. ROACTEMRA [Suspect]
     Active Substance: TOCILIZUMAB
     Route: 042
     Dates: start: 20161019
  9. PREDNISOLON [Concomitant]
     Active Substance: PREDNISOLONE
     Route: 065
  10. CARDIOL (FINLAND) [Concomitant]
     Route: 065
     Dates: start: 201105
  11. ACETYLSALICYLIC ACID [Concomitant]
     Active Substance: ASPIRIN
     Route: 065
     Dates: start: 201108
  12. PREDNISOLON [Concomitant]
     Active Substance: PREDNISOLONE
     Route: 048
  13. PREDNISOLON [Concomitant]
     Active Substance: PREDNISOLONE
     Dosage: 20-12.5 MG
     Route: 065
  14. PREDNISOLON [Concomitant]
     Active Substance: PREDNISOLONE
     Dosage: IN JUN-AUG 2016
     Route: 065

REACTIONS (6)
  - Cardiac disorder [Unknown]
  - Gastroenteritis [Unknown]
  - Dehydration [Unknown]
  - Arteritis [Unknown]
  - Electrocardiogram T wave inversion [Unknown]
  - Off label use [Unknown]

NARRATIVE: CASE EVENT DATE: 20160914
